FAERS Safety Report 16091009 (Version 1)
Quarter: 2019Q1

REPORT INFORMATION
  Report Type: Spontaneous
  Country: IT (occurrence: IT)
  Receive Date: 20190319
  Receipt Date: 20190319
  Transmission Date: 20190418
  Serious: Yes (Other)
  Sender: FDA-Public Use
  Company Number: IT-ASTRAZENECA-2019SE40050

PATIENT
  Age: 55 Year
  Sex: Male

DRUGS (6)
  1. EN [Concomitant]
     Active Substance: DELORAZEPAM
  2. BRILIQUE [Suspect]
     Active Substance: TICAGRELOR
     Route: 048
     Dates: start: 20190210, end: 20190219
  3. CARDIOASPIRIN [Suspect]
     Active Substance: ASPIRIN
     Route: 048
     Dates: start: 20190210, end: 20190219
  4. ATORVASTATIN [Concomitant]
     Active Substance: ATORVASTATIN
     Dosage: 80.0MG UNKNOWN
     Route: 048
  5. SERENASE [Concomitant]
     Route: 048
  6. OLANZAPINE. [Concomitant]
     Active Substance: OLANZAPINE
     Dosage: 5.0MG UNKNOWN
     Route: 048

REACTIONS (3)
  - Pruritus [Recovering/Resolving]
  - Urticaria [Recovering/Resolving]
  - Hyperaemia [Recovering/Resolving]

NARRATIVE: CASE EVENT DATE: 20190218
